FAERS Safety Report 14761298 (Version 2)
Quarter: 2018Q2

REPORT INFORMATION
  Report Type: Spontaneous
  Country: KR (occurrence: KR)
  Receive Date: 20180415
  Receipt Date: 20180427
  Transmission Date: 20180711
  Serious: Yes (Other)
  Sender: FDA-Public Use
  Company Number: PHHY2018KR064001

PATIENT
  Age: 32 Year
  Sex: Female

DRUGS (1)
  1. METHYLPREDNISOLONE. [Suspect]
     Active Substance: METHYLPREDNISOLONE
     Indication: SYRINGOMYELIA
     Dosage: 500 MG, QD (STEROID PULSE THERAPY)
     Route: 065

REACTIONS (3)
  - Gallbladder enlargement [Recovered/Resolved]
  - Hepatitis toxic [Recovered/Resolved]
  - Abdominal pain upper [Recovered/Resolved]
